FAERS Safety Report 24616995 (Version 2)
Quarter: 2024Q4

REPORT INFORMATION
  Report Type: Spontaneous
  Country: US (occurrence: US)
  Receive Date: 20241114
  Receipt Date: 20241120
  Transmission Date: 20250115
  Serious: Yes (Death)
  Sender: ROCHE
  Company Number: US-ROCHE-10000130172

PATIENT
  Age: 89 Year
  Sex: Male

DRUGS (1)
  1. ESBRIET [Suspect]
     Active Substance: PIRFENIDONE
     Indication: Product used for unknown indication
     Route: 048

REACTIONS (1)
  - Death [Fatal]
